FAERS Safety Report 6607272-3 (Version None)
Quarter: 2010Q1

REPORT INFORMATION
  Report Type: 
  Country: None (occurrence: None)
  Receive Date: 20100228
  Receipt Date: 20100215
  Transmission Date: 20100710
  Serious: Yes (Death)
  Sender: FDA-Public Use
  Company Number: US-JNJFOC-20100208388

PATIENT
  Age: 47 Year
  Sex: Female
  Weight: 91.45 kg

DRUGS (6)
  1. DURAGESIC-100 [Suspect]
     Indication: DRUG USE FOR UNKNOWN INDICATION
     Route: 062
  2. GABAPENTIN [Suspect]
     Indication: DRUG USE FOR UNKNOWN INDICATION
     Route: 065
  3. OXYCODONE HCL [Suspect]
     Indication: DRUG USE FOR UNKNOWN INDICATION
     Route: 065
  4. PROMETHAZINE [Suspect]
     Indication: DRUG USE FOR UNKNOWN INDICATION
     Route: 065
  5. OPIATES [Concomitant]
     Route: 065
  6. BENZODIAZEPINE NOS [Concomitant]
     Route: 065

REACTIONS (2)
  - MULTIPLE DRUG OVERDOSE [None]
  - WRONG TECHNIQUE IN DRUG USAGE PROCESS [None]
